FAERS Safety Report 18177583 (Version 1)
Quarter: 2020Q3

REPORT INFORMATION
  Report Type: Spontaneous
  Country: CA (occurrence: CA)
  Receive Date: 20200820
  Receipt Date: 20200820
  Transmission Date: 20201103
  Serious: Yes (Hospitalization)
  Sender: FDA-Public Use
  Company Number: CA-TEVA-2020-CA-1815852

PATIENT
  Age: 79 Year
  Sex: Female
  Weight: 55 kg

DRUGS (15)
  1. ELIQUIS [Concomitant]
     Active Substance: APIXABAN
  2. STEMETIL [Concomitant]
     Active Substance: PROCHLORPERAZINE
  3. DOXORUBICIN HYDROCHLORIDE INJECTION [Suspect]
     Active Substance: DOXORUBICIN HYDROCHLORIDE
     Indication: LYMPHOMA
  4. RITUXIMAB. [Suspect]
     Active Substance: RITUXIMAB
     Indication: LYMPHOMA
     Route: 042
  5. DILTIAZEM. [Concomitant]
     Active Substance: DILTIAZEM
  6. PREDNISONE. [Suspect]
     Active Substance: PREDNISONE
     Indication: LYMPHOMA
     Dosage: 100 MILLIGRAM DAILY; DURATION 21 DAYS
  7. DILAUDID [Concomitant]
     Active Substance: HYDROMORPHONE HYDROCHLORIDE
  8. SERAX [Concomitant]
     Active Substance: OXAZEPAM
  9. TYLENOL [Concomitant]
     Active Substance: ACETAMINOPHEN
  10. VINCRISTINE SULFATE INJECTION USP [Suspect]
     Active Substance: VINCRISTINE SULFATE
     Indication: LYMPHOMA
     Route: 042
  11. ASA [Concomitant]
     Active Substance: ASPIRIN
  12. NORVASC [Concomitant]
     Active Substance: AMLODIPINE BESYLATE
  13. SENOKOT [Concomitant]
     Active Substance: SENNOSIDES
  14. CYCLOPHOSPHAMIDE. [Suspect]
     Active Substance: CYCLOPHOSPHAMIDE
     Indication: LYMPHOMA
     Route: 042
  15. FILGRASTIM [Concomitant]
     Active Substance: FILGRASTIM

REACTIONS (3)
  - Bacterial translocation [Not Recovered/Not Resolved]
  - Abdominal sepsis [Not Recovered/Not Resolved]
  - Colitis [Not Recovered/Not Resolved]
